FAERS Safety Report 21553188 (Version 2)
Quarter: 2022Q4

REPORT INFORMATION
  Report Type: Spontaneous
  Country: LB (occurrence: LB)
  Receive Date: 20221104
  Receipt Date: 20221107
  Transmission Date: 20230113
  Serious: Yes (Death)
  Sender: FDA-Public Use
  Company Number: LB-BAUSCH-BL-2022-024647

PATIENT
  Age: 61 Year
  Sex: Male

DRUGS (4)
  1. METFORMIN [Suspect]
     Active Substance: METFORMIN HYDROCHLORIDE
     Indication: Diabetes mellitus
     Route: 065
  2. METFORMIN\VILDAGLIPTIN [Suspect]
     Active Substance: METFORMIN\VILDAGLIPTIN
     Indication: Diabetes mellitus
     Dosage: 50 MG/1000 MG
     Route: 065
  3. IRBESARTAN [Concomitant]
     Active Substance: IRBESARTAN
     Indication: Hypertension
  4. AMLODIPINE [Concomitant]
     Active Substance: AMLODIPINE BESYLATE
     Indication: Hypertension

REACTIONS (1)
  - Lactic acidosis [Fatal]
